FAERS Safety Report 7136853-6 (Version None)
Quarter: 2010Q4

REPORT INFORMATION
  Report Type: 
  Country: None (occurrence: None)
  Receive Date: 20101119
  Receipt Date: 20101028
  Transmission Date: 20110411
  Serious: Yes (Hospitalization)
  Sender: FDA-Public Use
  Company Number: 2010SP057482

PATIENT
  Age: 67 Year
  Sex: Female
  Weight: 78.9259 kg

DRUGS (23)
  1. REMERON [Suspect]
     Indication: ANXIETY
     Dosage: 15 MG; HS; PO
     Route: 048
  2. REMERON [Suspect]
     Indication: DEPRESSION
     Dosage: 15 MG; HS; PO
     Route: 048
  3. REMERON [Suspect]
     Indication: INSOMNIA
     Dosage: 15 MG; HS; PO
     Route: 048
  4. REMICADE [Suspect]
     Indication: RHEUMATOID ARTHRITIS
     Dosage: 200 MG; IV, 200 MG; IV, 200 MG; IV
     Route: 042
     Dates: start: 20091208
  5. REMICADE [Suspect]
     Indication: RHEUMATOID ARTHRITIS
     Dosage: 200 MG; IV, 200 MG; IV, 200 MG; IV
     Route: 042
     Dates: start: 20100202
  6. REMICADE [Suspect]
     Indication: RHEUMATOID ARTHRITIS
     Dosage: 200 MG; IV, 200 MG; IV, 200 MG; IV
     Route: 042
     Dates: start: 20100212
  7. METHOTREXATE [Suspect]
     Indication: RHEUMATOID ARTHRITIS
     Dosage: 2.5 MG; PO
     Route: 048
  8. PERCOCET [Suspect]
     Indication: PAIN
     Dosage: PO
     Route: 048
  9. ANTIBIOTICS [Suspect]
     Indication: PRODUCT USED FOR UNKNOWN INDICATION
  10. PREDNISONE [Suspect]
     Indication: RHEUMATOID ARTHRITIS
     Dosage: 5 MG; QD; PO, 30 MG; QD; PO, 2.5 MG; QD; PO
     Route: 048
  11. ALPRAZOLAM [Suspect]
     Indication: ANXIETY
  12. VITAMINS [Concomitant]
  13. OMEPRAZOLE [Concomitant]
  14. FOLIC ACID [Concomitant]
  15. CALCIUM D [Concomitant]
  16. PROVENTIL-HFA [Concomitant]
  17. ERGOCALCIFEROL [Concomitant]
  18. METOPROLOL SUCCINATE [Concomitant]
  19. SIMVASTATIN [Concomitant]
  20. PREMARIN [Concomitant]
  21. FELODIPINE [Concomitant]
  22. OLMESARTAN MEDOXOMIL [Concomitant]
  23. NOVOLOG [Concomitant]

REACTIONS (21)
  - ACUTE RESPIRATORY FAILURE [None]
  - ADRENAL INSUFFICIENCY [None]
  - ARTHROPATHY [None]
  - BLOOD GLUCOSE INCREASED [None]
  - CHONDROCALCINOSIS [None]
  - EXOSTOSIS [None]
  - HAEMATOCRIT DECREASED [None]
  - HAEMOGLOBIN INCREASED [None]
  - HEADACHE [None]
  - HYPOTENSION [None]
  - HYPOVOLAEMIA [None]
  - INCORRECT DOSE ADMINISTERED [None]
  - INFECTION IN AN IMMUNOCOMPROMISED HOST [None]
  - JOINT DISLOCATION [None]
  - OPPORTUNISTIC INFECTION [None]
  - OSTEOARTHRITIS [None]
  - PNEUMONIA [None]
  - PNEUMONIA PRIMARY ATYPICAL [None]
  - ROTATOR CUFF SYNDROME [None]
  - SEPSIS [None]
  - SEPTIC SHOCK [None]
